FAERS Safety Report 17831374 (Version 2)
Quarter: 2020Q2

REPORT INFORMATION
  Report Type: Spontaneous
  Country: NZ (occurrence: NZ)
  Receive Date: 20200527
  Receipt Date: 20200603
  Transmission Date: 20200714
  Serious: Yes (Other)
  Sender: FDA-Public Use
  Company Number: NZ-JNJFOC-20200515327

PATIENT
  Age: 32 Year
  Sex: Female

DRUGS (1)
  1. REMICADE [Suspect]
     Active Substance: INFLIXIMAB
     Indication: CROHN^S DISEASE
     Route: 042

REACTIONS (3)
  - Surgery [Unknown]
  - Anorectal disorder [Unknown]
  - Drug ineffective [Unknown]
